FAERS Safety Report 19883490 (Version 1)
Quarter: 2021Q3

REPORT INFORMATION
  Report Type: Spontaneous
  Country: US (occurrence: US)
  Receive Date: 20210926
  Receipt Date: 20210926
  Transmission Date: 20211014
  Serious: No
  Sender: FDA-Public Use
  Company Number: US-BIOVITRUM-2021US8554

PATIENT
  Sex: Male
  Weight: 10 kg

DRUGS (5)
  1. CEFDINIR. [Concomitant]
     Active Substance: CEFDINIR
     Dosage: 125 MG/5 ML
  2. SYNAGIS [Suspect]
     Active Substance: PALIVIZUMAB
     Indication: PREMATURE BABY
     Route: 030
  3. EPINEPHRINE HCL [Concomitant]
     Active Substance: EPINEPHRINE
  4. MULTIVITAMIN [Concomitant]
     Active Substance: VITAMINS
  5. SYNAGIS [Suspect]
     Active Substance: PALIVIZUMAB
     Indication: PATENT DUCTUS ARTERIOSUS

REACTIONS (1)
  - Ear infection [Unknown]
